FAERS Safety Report 4627081-4 (Version None)
Quarter: 2005Q1

REPORT INFORMATION
  Report Type: 
  Country: None (occurrence: None)
  Receive Date: 20050331
  Receipt Date: 20050318
  Transmission Date: 20050727
  Serious: Yes (Other)
  Sender: FDA-Public Use
  Company Number: 19

PATIENT
  Age: 24 Year
  Sex: Female

DRUGS (6)
  1. MINOCYCLINE HCL [Suspect]
     Indication: ACNE
     Dosage: 100 MG QAM PO
     Route: 048
  2. MINOCYCLINE HCL [Suspect]
     Indication: ACNE
     Dosage: 50 MG QPM PO
     Route: 048
  3. DIFFERIN [Concomitant]
  4. TRIAZ [Concomitant]
  5. ESTROTEP [Concomitant]
  6. WEEKLY IMMUNOTHERAPY [Concomitant]

REACTIONS (5)
  - DEPERSONALISATION [None]
  - FATIGUE [None]
  - HEADACHE [None]
  - INDIFFERENCE [None]
  - LETHARGY [None]
